FAERS Safety Report 25690310 (Version 1)
Quarter: 2025Q3

REPORT INFORMATION
  Report Type: Spontaneous
  Country: US (occurrence: None)
  Receive Date: 20250815
  Receipt Date: 20250815
  Transmission Date: 20251021
  Serious: No
  Sender: FDA-CTU
  Company Number: None

PATIENT

DRUGS (1)
  1. LEVOTHYROXINE [Suspect]
     Active Substance: LEVOTHYROXINE

REACTIONS (7)
  - Rash [None]
  - Headache [None]
  - Dizziness [None]
  - Abdominal discomfort [None]
  - Pollakiuria [None]
  - Frequent bowel movements [None]
  - Therapy interrupted [None]
